FAERS Safety Report 17928613 (Version 2)
Quarter: 2020Q4

REPORT INFORMATION
  Report Type: Other
  Country: ES (occurrence: ES)
  Receive Date: 20200623
  Receipt Date: 20201126
  Transmission Date: 20210113
  Serious: Yes (Other)
  Sender: FDA-Public Use
  Company Number: ES-MACLEODS PHARMACEUTICALS US LTD-MAC2020026873

PATIENT

DRUGS (11)
  1. GARDASIL [Suspect]
     Active Substance: HUMAN PAPILLOMAVIRUS QUADRIVALENT (TYPES 6, 11, 16, AND 18) VACCINE, RECOMBINANT
     Indication: LARYNGEAL PAPILLOMA
     Dosage: UNK, SUSPENSION FOR INJECTION IN A PRE-FILLED SYRINGE
     Route: 065
  2. GARDASIL [Suspect]
     Active Substance: HUMAN PAPILLOMAVIRUS QUADRIVALENT (TYPES 6, 11, 16, AND 18) VACCINE, RECOMBINANT
     Indication: RESPIRATORY PAPILLOMA
     Dosage: UNK
     Route: 065
     Dates: start: 200707, end: 200707
  3. ERLOTINIB HYDROCHLORIDE. [Suspect]
     Active Substance: ERLOTINIB HYDROCHLORIDE
     Dosage: UNK
     Route: 065
  4. INTERFERON ALPHA-2B [Suspect]
     Active Substance: INTERFERON ALFA-2B
     Indication: LARYNGEAL PAPILLOMA
     Dosage: UNK
     Route: 065
  5. CIDOFOVIR. [Suspect]
     Active Substance: CIDOFOVIR
     Indication: RESPIRATORY PAPILLOMA
     Dosage: UNK
     Route: 065
  6. CIDOFOVIR. [Suspect]
     Active Substance: CIDOFOVIR
     Indication: LARYNGEAL PAPILLOMA
     Dosage: UNK
     Route: 065
  7. ERLOTINIB HYDROCHLORIDE. [Suspect]
     Active Substance: ERLOTINIB HYDROCHLORIDE
     Indication: RESPIRATORY PAPILLOMA
     Dosage: 150 MILLIGRAM, QD
     Route: 065
  8. ERLOTINIB HYDROCHLORIDE. [Suspect]
     Active Substance: ERLOTINIB HYDROCHLORIDE
     Indication: LARYNGEAL PAPILLOMA
     Dosage: UNK
     Route: 065
  9. CELECOXIB 200 MG [Suspect]
     Active Substance: CELECOXIB
     Indication: LARYNGEAL PAPILLOMA
     Dosage: 200 MILLIGRAM, QD
     Route: 042
  10. CELECOXIB 200 MG [Suspect]
     Active Substance: CELECOXIB
     Indication: RESPIRATORY PAPILLOMA
     Dosage: 200 MILLIGRAM, QD
     Route: 042
  11. INTERFERON ALPHA-2B [Suspect]
     Active Substance: INTERFERON ALFA-2B
     Indication: RESPIRATORY PAPILLOMA
     Dosage: UNK, 4,5 MILLION OF UNITS, ALTERNATE DAYS
     Route: 058
     Dates: start: 200112, end: 200201

REACTIONS (4)
  - Respiratory papilloma [Recovering/Resolving]
  - Papilloma viral infection [Recovering/Resolving]
  - Off label use [Unknown]
  - Laryngeal papilloma [Recovering/Resolving]

NARRATIVE: CASE EVENT DATE: 200707
